FAERS Safety Report 11323836 (Version 2)
Quarter: 2015Q3

REPORT INFORMATION
  Report Type: Spontaneous
  Country: BR (occurrence: BR)
  Receive Date: 20150730
  Receipt Date: 20150730
  Transmission Date: 20151125
  Serious: Yes (Death, Life-Threatening)
  Sender: FDA-Public Use
  Company Number: BR-JNJFOC-20150719448

PATIENT
  Age: 82 Year
  Sex: Female
  Weight: 57 kg

DRUGS (3)
  1. XARELTO [Suspect]
     Active Substance: RIVAROXABAN
     Indication: AORTIC STENOSIS
     Dosage: 2 DF, QD (10 MG)
     Route: 048
     Dates: start: 20150716, end: 20150716
  2. XARELTO [Suspect]
     Active Substance: RIVAROXABAN
     Indication: CEREBROVASCULAR ACCIDENT PROPHYLAXIS
     Dosage: 2 DF, QD (10 MG)
     Route: 048
     Dates: start: 20150716, end: 20150716
  3. XARELTO [Suspect]
     Active Substance: RIVAROXABAN
     Indication: ATRIAL FIBRILLATION
     Dosage: 2 DF, QD (10 MG)
     Route: 048
     Dates: start: 20150716, end: 20150716

REACTIONS (6)
  - Retroperitoneal haemorrhage [Fatal]
  - Bradycardia [Fatal]
  - Cardiac arrest [Fatal]
  - Pulseless electrical activity [Fatal]
  - Cardio-respiratory arrest [Fatal]
  - Shock haemorrhagic [Fatal]

NARRATIVE: CASE EVENT DATE: 20150716
